FAERS Safety Report 7652523-X (Version None)
Quarter: 2011Q3

REPORT INFORMATION
  Report Type: 
  Country: None (occurrence: None)
  Receive Date: 20110803
  Receipt Date: 20110725
  Transmission Date: 20111222
  Serious: Yes (Hospitalization)
  Sender: FDA-Public Use
  Company Number: FR-MILLENNIUM PHARMACEUTICALS, INC.-2011-02905

PATIENT

DRUGS (9)
  1. REVLIMID [Suspect]
     Indication: MULTIPLE MYELOMA
     Dosage: 25 MG, CYCLIC
     Dates: start: 20110628, end: 20110710
  2. BACTRIM [Concomitant]
     Indication: PROPHYLAXIS
     Dosage: 3 UNK, UNK
     Route: 048
     Dates: start: 20110628
  3. VELCADE [Suspect]
     Indication: MULTIPLE MYELOMA
     Dosage: 1.3 MG/M2, CYCLIC
     Dates: start: 20110628, end: 20110701
  4. ZELITREX                           /01269701/ [Concomitant]
     Indication: PROPHYLAXIS
     Dosage: 1 G, UNK
     Route: 048
     Dates: start: 20110628
  5. FOLIC ACID [Concomitant]
     Indication: PROPHYLAXIS
     Dosage: 3 UNK, UNK
     Route: 048
     Dates: start: 20110628
  6. MORPHINE SULFATE [Concomitant]
     Dosage: 60 MG, UNK
     Route: 065
  7. ZADITEN                            /00495202/ [Concomitant]
     Route: 065
  8. INNOHEP [Concomitant]
     Indication: EMBOLISM
     Dosage: UNK
  9. DEXAMETHASONE [Suspect]
     Indication: MULTIPLE MYELOMA
     Dosage: 20 MG, CYCLIC
     Dates: start: 20110628, end: 20110702

REACTIONS (2)
  - NEUTROPENIA [None]
  - LUNG DISORDER [None]
